FAERS Safety Report 18831608 (Version 1)
Quarter: 2021Q1

REPORT INFORMATION
  Report Type: Other
  Country: CZ (occurrence: CZ)
  Receive Date: 20210203
  Receipt Date: 20210203
  Transmission Date: 20210419
  Serious: Yes (Hospitalization)
  Sender: FDA-Public Use
  Company Number: CZ-CELLTRION INC.-2021CZ001014

PATIENT

DRUGS (9)
  1. ACIDUM FOLICUM [Concomitant]
     Active Substance: FOLIC ACID
     Dosage: 1 DF, 1/WEEK, 0?0?1
  2. CALCICHEW [Concomitant]
     Active Substance: CALCIUM CARBONATE
     Dosage: 0?0?1
  3. HELICID [Concomitant]
     Active Substance: OMEPRAZOLE
     Dosage: 1?0?0
  4. REMSIMA [Suspect]
     Active Substance: INFLIXIMAB
     Indication: RHEUMATOID ARTHRITIS
     Dosage: 3 DF (3 AMPULES)
     Route: 042
     Dates: start: 20191121
  5. ACLEXA [Concomitant]
     Active Substance: CELECOXIB
     Dosage: 1?0?1
  6. LEFLUNOMID [Concomitant]
     Active Substance: LEFLUNOMIDE
     Dosage: 20 MG, QD, 1?0?0
  7. TREXAN [Concomitant]
     Dosage: 4 DF, 1/WEEK 2?0?2
  8. GLUCOPHAGE [Concomitant]
     Active Substance: METFORMIN HYDROCHLORIDE
     Dosage: 0?0?1
  9. VIGANTOL [Concomitant]
     Dosage: 0?3?0

REACTIONS (4)
  - Anaphylactic shock [Recovered/Resolved]
  - Hypotonia [Recovered/Resolved]
  - Loss of consciousness [Recovered/Resolved]
  - Bundle branch block right [Unknown]
